FAERS Safety Report 9083909 (Version 1)
Quarter: 2013Q1

REPORT INFORMATION
  Report Type: Report from Study
  Country: US (occurrence: US)
  Receive Date: 20130131
  Receipt Date: 20130131
  Transmission Date: 20140127
  Serious: No
  Sender: FDA-Public Use
  Company Number: US-ABBOTT-12P-163-0991639-00

PATIENT
  Age: 28 Year
  Sex: Female

DRUGS (4)
  1. HUMIRA [Suspect]
     Indication: CROHN^S DISEASE
     Route: 058
     Dates: start: 200810
  2. HUMIRA [Suspect]
     Dates: start: 201005
  3. PRO-AIR [Concomitant]
     Indication: ASTHMA
  4. PRENATAL VITAMINS [Concomitant]
     Indication: BLOOD CHOLESTEROL DECREASED
     Route: 048

REACTIONS (3)
  - Rhinorrhoea [Not Recovered/Not Resolved]
  - Chest discomfort [Not Recovered/Not Resolved]
  - Nasopharyngitis [Not Recovered/Not Resolved]
